FAERS Safety Report 8272577 (Version 2)
Quarter: 2013Q3

REPORT INFORMATION
  Report Type: Spontaneous
  Country: US (occurrence: US)
  Receive Date: 20111202
  Receipt Date: 20130827
  Transmission Date: 20140515
  Serious: Yes (Other)
  Sender: FDA-Public Use
  Company Number: US-ROCHE-1015580

PATIENT
  Age: 65 Year
  Sex: Female

DRUGS (3)
  1. BONVIVA [Suspect]
     Indication: OSTEOPOROSIS
     Route: 065
     Dates: start: 20060121, end: 20101201
  2. FOSAMAX [Suspect]
     Indication: OSTEOPOROSIS
     Route: 065
     Dates: start: 1995
  3. FOSAMAX [Suspect]
     Route: 048
     Dates: start: 20051130, end: 20051227

REACTIONS (5)
  - Osteonecrosis of jaw [Unknown]
  - Anxiety [Unknown]
  - Emotional distress [Unknown]
  - Low turnover osteopathy [Unknown]
  - Injury [Unknown]
